FAERS Safety Report 14490008 (Version 1)
Quarter: 2018Q1

REPORT INFORMATION
  Report Type: Spontaneous
  Country: US (occurrence: US)
  Receive Date: 20180206
  Receipt Date: 20180206
  Transmission Date: 20180509
  Serious: Yes (Life-Threatening, Hospitalization, Other)
  Sender: FDA-Public Use
  Company Number: US-CIPLA LTD.-2018US02605

PATIENT

DRUGS (6)
  1. GEMCITABINE [Suspect]
     Active Substance: GEMCITABINE\GEMCITABINE HYDROCHLORIDE
     Indication: PLEURAL NEOPLASM
     Dosage: UNK
     Route: 065
  2. PACLITAXEL. [Suspect]
     Active Substance: PACLITAXEL
     Indication: PLEURAL NEOPLASM
     Dosage: UNK
     Route: 065
  3. CARBOPLATIN. [Suspect]
     Active Substance: CARBOPLATIN
     Indication: PLEURAL NEOPLASM
     Dosage: UNK
     Route: 065
  4. DOCETAXEL. [Suspect]
     Active Substance: DOCETAXEL
     Indication: PLEURAL NEOPLASM
     Dosage: UNK
     Route: 065
  5. TEMOZOLOMIDE. [Suspect]
     Active Substance: TEMOZOLOMIDE
     Indication: PLEURAL NEOPLASM
     Dosage: 150 MG/M2, ON DAYS 1-7 AND DAYS 15-21
     Route: 048
  6. BEVACIZUMAB. [Suspect]
     Active Substance: BEVACIZUMAB
     Indication: PLEURAL NEOPLASM
     Dosage: 5 MG/KG, ON DAYS 8 AND 22, REPEATED EVERY 28-DAY CYCLE
     Route: 042

REACTIONS (13)
  - Febrile neutropenia [Unknown]
  - Fatigue [Unknown]
  - Oral candidiasis [Unknown]
  - Nausea [Unknown]
  - Vomiting [Unknown]
  - Hypophagia [Unknown]
  - Malignant neoplasm progression [Unknown]
  - Metastasis [Unknown]
  - Pneumonia [Unknown]
  - Prerenal failure [Unknown]
  - Drug ineffective [Unknown]
  - Stomatitis [Unknown]
  - Dehydration [Unknown]
